FAERS Safety Report 9370336 (Version 2)
Quarter: 2013Q4

REPORT INFORMATION
  Report Type: Spontaneous
  Country: TR (occurrence: TR)
  Receive Date: 20130626
  Receipt Date: 20131217
  Transmission Date: 20140711
  Serious: Yes (Other)
  Sender: FDA-Public Use
  Company Number: TR-VERTEX PHARMACEUTICALS INC-2013-007464

PATIENT
  Age: 48 Year
  Sex: Female

DRUGS (6)
  1. INCIVO [Suspect]
     Indication: HEPATITIS C
     Dosage: 750 MG, UNK
     Route: 048
     Dates: start: 20130612, end: 20130620
  2. PEGINTERFERON ALFA [Suspect]
     Indication: HEPATITIS C
     Dosage: DOSAGE FORM: UNSPECIFIED
     Route: 065
     Dates: start: 20130612
  3. RIBAVIRIN [Suspect]
     Indication: HEPATITIS C
     Dosage: DOSAGE FORM: UNSPECIFIED
     Route: 065
     Dates: start: 20130612
  4. URSOFALK [Concomitant]
     Dosage: DOSAGE FORM: UNSPECIFIED
     Route: 065
  5. INSULIN [Concomitant]
     Indication: DIABETES MELLITUS
     Dosage: DOSAGE FORM: UNSPECIFIED
     Route: 065
  6. IRON [Concomitant]
     Dosage: DOSAGE FORM: UNSPECIFIED
     Route: 065

REACTIONS (2)
  - Hyperglycaemia [Unknown]
  - General physical condition abnormal [Unknown]
